FAERS Safety Report 9017011 (Version 2)
Quarter: 2013Q2

REPORT INFORMATION
  Report Type: Spontaneous
  Country: US (occurrence: US)
  Receive Date: 20130117
  Receipt Date: 20130612
  Transmission Date: 20140414
  Serious: Yes (Death, Other)
  Sender: FDA-Public Use
  Company Number: US-COVIDIEN/TYCO HEALTHCARE/MALLINCKRODT-T201204503

PATIENT
  Age: 62 Year
  Sex: Male

DRUGS (1)
  1. GABLOFEN [Suspect]
     Indication: MUSCLE SPASTICITY
     Dosage: 287 MCG/DAY
     Route: 037

REACTIONS (3)
  - Muscle spasticity [Unknown]
  - Urinary tract infection [Unknown]
  - Device failure [Unknown]
